FAERS Safety Report 5576928-6 (Version None)
Quarter: 2007Q4

REPORT INFORMATION
  Report Type: 
  Country: None (occurrence: None)
  Receive Date: 20071228
  Receipt Date: 20071218
  Transmission Date: 20080405
  Serious: Yes (Hospitalization)
  Sender: FDA-Public Use
  Company Number: FR-ABBOTT-07P-056-0431107-00

PATIENT
  Sex: Female

DRUGS (7)
  1. DEPAKENE [Suspect]
     Indication: COMPLEX PARTIAL SEIZURES
     Dates: start: 20070301
  2. DEPAKENE [Suspect]
     Dosage: CHRONO
     Route: 048
     Dates: start: 20070824, end: 20071022
  3. OXCARBAZEPINE [Suspect]
     Indication: PARTIAL SEIZURES
     Route: 048
     Dates: start: 20070824, end: 20071022
  4. KARVEA HCT [Concomitant]
     Indication: DRUG USE FOR UNKNOWN INDICATION
     Route: 048
  5. LANSOPRAZOLE [Concomitant]
     Indication: DRUG USE FOR UNKNOWN INDICATION
     Route: 048
  6. BUFLOMEDIL [Concomitant]
     Indication: DRUG USE FOR UNKNOWN INDICATION
     Route: 048
  7. MEBEVERINE HYDROCHLORIDE [Concomitant]
     Indication: DRUG USE FOR UNKNOWN INDICATION
     Route: 048

REACTIONS (19)
  - ANXIETY [None]
  - BALANCE DISORDER [None]
  - BRONCHITIS [None]
  - COGNITIVE DISORDER [None]
  - DYSSTASIA [None]
  - EPILEPSY [None]
  - FALL [None]
  - FATIGUE [None]
  - FEELING ABNORMAL [None]
  - GAIT DISTURBANCE [None]
  - HALLUCINATION [None]
  - HYPONATRAEMIA [None]
  - MENTAL DISORDER [None]
  - MONOPARESIS [None]
  - MUSCULOSKELETAL CHEST PAIN [None]
  - MYOCLONUS [None]
  - PSYCHOMOTOR SKILLS IMPAIRED [None]
  - RIB FRACTURE [None]
  - SOMNOLENCE [None]
